FAERS Safety Report 5970384-1 (Version None)
Quarter: 2008Q4

REPORT INFORMATION
  Report Type: 
  Country: None (occurrence: None)
  Receive Date: 20081126
  Receipt Date: 20081022
  Transmission Date: 20090506
  Serious: No
  Sender: FDA-Public Use
  Company Number: US-ABBOTT-08P-163-0483440-00

PATIENT
  Sex: Female

DRUGS (6)
  1. SIMCOR [Suspect]
     Indication: BLOOD CHOLESTEROL INCREASED
     Dosage: 500MG/20MG EVERY NIGHT
     Dates: start: 20081002
  2. SIMCOR [Suspect]
     Indication: LOW DENSITY LIPOPROTEIN INCREASED
  3. ACETYLSALICYLIC ACID SRT [Concomitant]
     Indication: DRUG USE FOR UNKNOWN INDICATION
  4. CLONIDINE [Concomitant]
     Indication: DRUG USE FOR UNKNOWN INDICATION
     Route: 061
  5. UNKNOWN PAIN MEDICATION [Concomitant]
     Indication: PAIN
  6. UNKNOWN ANTIDEPRESSANT [Concomitant]
     Indication: ANTIDEPRESSANT THERAPY

REACTIONS (3)
  - FLUSHING [None]
  - PARAESTHESIA [None]
  - SWELLING FACE [None]
